FAERS Safety Report 8869631 (Version 1)
Quarter: 2012Q4

REPORT INFORMATION
  Report Type: 
  Country: US (occurrence: US)
  Receive Date: 20121026
  Receipt Date: 20121026
  Transmission Date: 20130627
  Serious: No
  Sender: FDA-Public Use
  Company Number: US-AMGEN-USASP2012045863

PATIENT
  Age: 55 Year
  Sex: Female
  Weight: 74.83 kg

DRUGS (6)
  1. ENBREL [Suspect]
     Indication: PRODUCT USED FOR UNKNOWN INDICATION
     Dosage: 50 mg/ml, qwk
     Route: 058
  2. AMLODIPIN                          /00972401/ [Concomitant]
     Dosage: 10 mg, UNK
     Route: 048
  3. PREDNISONE [Concomitant]
     Dosage: 1 mg, UNK
     Route: 048
  4. SYNTHROID [Concomitant]
     Dosage: 100 mug, UNK
     Route: 048
  5. LEFLUNOMIDE [Concomitant]
     Dosage: 10 mg, UNK
     Route: 048
  6. HYDROCHLOROTH [Concomitant]
     Dosage: 12.5 mg, UNK
     Route: 048

REACTIONS (1)
  - Injection site reaction [Unknown]
